FAERS Safety Report 21905781 (Version 3)
Quarter: 2024Q2

REPORT INFORMATION
  Report Type: Report from Study
  Country: US (occurrence: US)
  Receive Date: 20230124
  Receipt Date: 20240405
  Transmission Date: 20240716
  Serious: No
  Sender: FDA-Public Use
  Company Number: US-BAUSCH-BL-2023-001086

PATIENT
  Age: 58 Year
  Sex: Male
  Weight: 78.636 kg

DRUGS (16)
  1. XIFAXAN [Suspect]
     Active Substance: RIFAXIMIN
     Indication: Hepatic encephalopathy
     Route: 048
  2. LACTULOSE [Suspect]
     Active Substance: LACTULOSE
     Indication: Hepatic encephalopathy
     Dosage: 10 G/15 ML ORAL SYRUP, 10 GM (15 ML), PO, TID
     Route: 048
  3. LACTULOSE [Suspect]
     Active Substance: LACTULOSE
     Dosage: 10 G/15 ML ORAL SYRUP, 20 GM (30 ML), PO, TID
     Route: 048
  4. AZO-CRANBERRY [Concomitant]
     Indication: Product used for unknown indication
     Dosage: 1 TAB, PO, DAILY
     Route: 048
  5. BOTOX [Concomitant]
     Active Substance: ONABOTULINUMTOXINA
     Indication: Product used for unknown indication
     Dosage: 100 UNITS INJECTION
  6. KEPPRA [Concomitant]
     Active Substance: LEVETIRACETAM
     Indication: Product used for unknown indication
     Dosage: 750 MG (1 TAB), PO, Q12H
     Route: 048
  7. LEVETIRACETAM [Concomitant]
     Active Substance: LEVETIRACETAM
     Indication: Product used for unknown indication
     Dosage: 180 EA
     Route: 048
  8. METAMUCIL [Concomitant]
     Active Substance: PLANTAGO SEED
     Indication: Product used for unknown indication
     Dosage: 500 MG (1 CAP), PO, DAILY, PRN
     Route: 048
  9. VITAMINS [Concomitant]
     Active Substance: VITAMINS
     Indication: Product used for unknown indication
     Dosage: 1 GUMMIE, CHEW, DAILY
     Route: 048
  10. PANTOPRAZOLE [Concomitant]
     Active Substance: PANTOPRAZOLE
     Indication: Product used for unknown indication
     Dosage: 40 MG (1 TAB), PO, DAILY, 5 REFILLS
     Route: 048
  11. SILDENAFIL [Concomitant]
     Active Substance: SILDENAFIL
     Indication: Product used for unknown indication
     Dosage: 4 EA
     Route: 048
  12. TIZANIDINE [Concomitant]
     Active Substance: TIZANIDINE
     Indication: Product used for unknown indication
     Dosage: 2 MG (1 TAB), PO, BID, AS NEEDED
     Route: 048
  13. VITAMIN D3 [Concomitant]
     Active Substance: CHOLECALCIFEROL
     Indication: Product used for unknown indication
     Dosage: 25 MICROGRAM (1 TAB), CHEW, DAILY
     Route: 048
  14. ZINC SULFATE [Concomitant]
     Active Substance: ZINC SULFATE
     Indication: Hepatic encephalopathy
     Dosage: 220 MG (1 CAP), PO, DAILY, 11 REFILLS
     Route: 048
  15. ZINC SULFATE [Concomitant]
     Active Substance: ZINC SULFATE
     Dosage: 220 MG (1 CAP), PO, DAILY
     Route: 048
  16. ZINC SULFATE [Concomitant]
     Active Substance: ZINC SULFATE
     Dosage: 220 MG (1 CAP), PO, DAILY, 6REFILLS
     Route: 048

REACTIONS (3)
  - Insurance issue [Unknown]
  - Inability to afford medication [Unknown]
  - Therapy interrupted [Unknown]
